FAERS Safety Report 6783568-X (Version None)
Quarter: 2010Q2

REPORT INFORMATION
  Report Type: 
  Country: None (occurrence: None)
  Receive Date: 20100622
  Receipt Date: 20100610
  Transmission Date: 20101027
  Serious: Yes (Hospitalization)
  Sender: FDA-Public Use
  Company Number: PHHY2010SG39562

PATIENT
  Age: 34 Year
  Sex: Male

DRUGS (2)
  1. DICLOFENAC SODIUM [Suspect]
     Dosage: UNK
  2. ALLOPURINOL [Suspect]
     Dosage: UNK

REACTIONS (8)
  - DRUG RASH WITH EOSINOPHILIA AND SYSTEMIC SYMPTOMS [None]
  - EOSINOPHILIA [None]
  - FACE OEDEMA [None]
  - HEPATITIS [None]
  - PURPURA [None]
  - PYREXIA [None]
  - RASH [None]
  - RASH MORBILLIFORM [None]
